FAERS Safety Report 18816852 (Version 1)
Quarter: 2021Q1

REPORT INFORMATION
  Report Type: Spontaneous
  Country: US (occurrence: US)
  Receive Date: 20210201
  Receipt Date: 20210201
  Transmission Date: 20210419
  Serious: No
  Sender: FDA-Public Use
  Company Number: US-PFIZER INC-2021074476

PATIENT
  Age: 63 Year
  Sex: Female

DRUGS (2)
  1. EFFEXOR XR [Suspect]
     Active Substance: VENLAFAXINE HYDROCHLORIDE
     Dosage: 150 MG
  2. ERYTHROMYCIN/ERYTHROMYCIN LACTOBIONATE/ERYTHROMYCIN STEARATE (ERYTHROMYCIN) [Suspect]
     Active Substance: ERYTHROMYCIN
     Dosage: 250 MG

REACTIONS (1)
  - Drug hypersensitivity [Unknown]
